FAERS Safety Report 25617709 (Version 1)
Quarter: 2025Q3

REPORT INFORMATION
  Report Type: Spontaneous
  Country: CA (occurrence: CA)
  Receive Date: 20250729
  Receipt Date: 20250729
  Transmission Date: 20251021
  Serious: Yes (Other)
  Sender: PFIZER
  Company Number: CA-PFIZER INC-202500151056

PATIENT
  Age: 71 Year
  Sex: Male

DRUGS (1)
  1. VYNDAMAX [Suspect]
     Active Substance: TAFAMIDIS
     Dates: start: 202507

REACTIONS (5)
  - Pulmonary oedema [Unknown]
  - Palpitations [Unknown]
  - Pruritus [Unknown]
  - Abdominal pain [Recovered/Resolved]
  - Dizziness postural [Not Recovered/Not Resolved]
